FAERS Safety Report 4615813-0 (Version None)
Quarter: 2005Q1

REPORT INFORMATION
  Report Type: 
  Country: None (occurrence: None)
  Receive Date: 20050321
  Receipt Date: 20050310
  Transmission Date: 20050727
  Serious: Yes (Life-Threatening, Hospitalization)
  Sender: FDA-Public Use
  Company Number: GXKR2005US00731

PATIENT
  Age: 78 Year
  Sex: Female
  Weight: 46 kg

DRUGS (7)
  1. METFORMIN(NGX) (METFORMIN) [Suspect]
     Indication: DIABETES MELLITUS NON-INSULIN-DEPENDENT
     Dosage: 850 MG, BID
  2. DILTIAZEM [Concomitant]
  3. CLONIDINE [Concomitant]
  4. NITROGLYCERIN [Concomitant]
  5. LANSOPRAZOLE [Concomitant]
  6. AMOXICILLIN [Concomitant]
  7. CLARITHROMYCIN [Concomitant]

REACTIONS (11)
  - ANOREXIA [None]
  - BLOOD GLUCOSE DECREASED [None]
  - HAEMODIALYSIS [None]
  - HELICOBACTER INFECTION [None]
  - LACTIC ACIDOSIS [None]
  - MALAISE [None]
  - MEDICATION ERROR [None]
  - NAUSEA [None]
  - PCO2 DECREASED [None]
  - PO2 INCREASED [None]
  - RENAL FAILURE [None]
